FAERS Safety Report 20411567 (Version 1)
Quarter: 2022Q1

REPORT INFORMATION
  Report Type: Report from Study
  Country: GB (occurrence: GB)
  Receive Date: 20220201
  Receipt Date: 20220201
  Transmission Date: 20220424
  Serious: Yes (Other)
  Sender: FDA-Public Use
  Company Number: GB-NOVARTISPH-NVSC2022GB021360

PATIENT
  Sex: Male

DRUGS (1)
  1. OMNITROPE [Suspect]
     Active Substance: SOMATROPIN
     Indication: Growth hormone deficiency
     Dosage: 0.15 MG, QD, ROUTE AS DIRECTED
     Route: 065
     Dates: start: 20151023

REACTIONS (3)
  - Epilepsy [Unknown]
  - Amnesia [Unknown]
  - Product dose omission issue [Unknown]
